FAERS Safety Report 11663061 (Version 1)
Quarter: 2015Q4

REPORT INFORMATION
  Report Type: Spontaneous
  Country: US (occurrence: US)
  Receive Date: 20151027
  Receipt Date: 20151027
  Transmission Date: 20160304
  Serious: No
  Sender: FDA-Public Use
  Company Number: US-MEDA-2010090001

PATIENT
  Age: 78 Year
  Sex: Female

DRUGS (10)
  1. ATIVAN [Concomitant]
     Active Substance: LORAZEPAM
     Route: 048
  2. VENTOLIN [Concomitant]
     Active Substance: ALBUTEROL SULFATE
  3. RESTORIL [Concomitant]
     Active Substance: TEMAZEPAM
     Route: 048
  4. ONSOLIS [Suspect]
     Active Substance: FENTANYL CITRATE
     Route: 002
  5. LORTAB [Concomitant]
     Active Substance: ACETAMINOPHEN\HYDROCODONE BITARTRATE
     Dosage: 10/325 MG
     Route: 048
  6. CLONIDINE. [Concomitant]
     Active Substance: CLONIDINE
     Dosage: 1-2 TABLETS
     Route: 048
  7. TOPROL XL [Concomitant]
     Active Substance: METOPROLOL SUCCINATE
     Route: 048
  8. POTASSIUM [Concomitant]
     Active Substance: POTASSIUM
     Route: 048
  9. ZANTAC [Concomitant]
     Active Substance: RANITIDINE HYDROCHLORIDE
     Route: 048
  10. ACETYCYSTEINE [Concomitant]

REACTIONS (1)
  - Intercepted drug dispensing error [Recovered/Resolved]

NARRATIVE: CASE EVENT DATE: 20100831
